FAERS Safety Report 10748087 (Version 1)
Quarter: 2015Q1

REPORT INFORMATION
  Report Type: Spontaneous
  Country: US (occurrence: None)
  Receive Date: 20150128
  Receipt Date: 20150128
  Transmission Date: 20150721
  Serious: Yes (Hospitalization)
  Sender: FDA-Public Use
  Company Number: None

PATIENT
  Age: 65 Year
  Sex: Male
  Weight: 85 kg

DRUGS (1)
  1. VANCOMYCIN [Suspect]
     Active Substance: VANCOMYCIN
     Indication: VASCULAR OPERATION
     Route: 042
     Dates: start: 20140402, end: 20140402

REACTIONS (10)
  - Feeling hot [None]
  - Blood pressure decreased [None]
  - Loss of consciousness [None]
  - Dysgeusia [None]
  - Urticaria [None]
  - Unresponsive to stimuli [None]
  - Pruritus [None]
  - Hyperhidrosis [None]
  - Agitation [None]
  - Hypotension [None]

NARRATIVE: CASE EVENT DATE: 20140402
